FAERS Safety Report 4520927-X (Version None)
Quarter: 2004Q4

REPORT INFORMATION
  Report Type: 
  Country: None (occurrence: None)
  Receive Date: 20041208
  Receipt Date: 20041201
  Transmission Date: 20050328
  Serious: Yes (Hospitalization, Other)
  Sender: FDA-Public Use
  Company Number: PHBS2004US16121

PATIENT
  Age: 29 Year
  Sex: Male

DRUGS (5)
  1. CYCLOSPORINE [Suspect]
     Indication: COLITIS ULCERATIVE
     Dosage: 4 MG/KG/D
     Route: 042
  2. CYCLOSPORINE [Suspect]
     Dosage: 8 MG/KG/D
     Route: 048
  3. MERCAPTOPURINE [Suspect]
  4. PREDNISONE [Suspect]
     Indication: COLITIS ULCERATIVE
     Dosage: 20 MG/D
     Route: 065
  5. INFLIXIMAB [Suspect]
     Indication: COLITIS ULCERATIVE
     Dosage: 5 MG/KG, ONCE/SINGLE

REACTIONS (8)
  - DIARRHOEA [None]
  - EPSTEIN-BARR VIRUS INFECTION [None]
  - INTESTINAL ANASTOMOSIS [None]
  - LYMPHOMA [None]
  - NO THERAPEUTIC RESPONSE [None]
  - POLYP [None]
  - POST PROCEDURAL COMPLICATION [None]
  - POUCHITIS [None]
